FAERS Safety Report 5672783-4 (Version None)
Quarter: 2008Q1

REPORT INFORMATION
  Report Type: 
  Country: None (occurrence: None)
  Receive Date: 20080319
  Receipt Date: 20070814
  Transmission Date: 20080703
  Serious: No
  Sender: FDA-Public Use
  Company Number: US-KINGPHARMUSA00001-K200701035

PATIENT

DRUGS (9)
  1. ALTACE [Suspect]
     Indication: HYPERTENSION
     Dosage: 10 MG, BID
     Route: 048
  2. TOPROL-XL [Concomitant]
     Indication: HYPERTENSION
  3. ASPIRIN [Concomitant]
     Dosage: UNK, QD
  4. ACTOS [Concomitant]
     Indication: DIABETES MELLITUS
     Dosage: UNK, QD
  5. TORSEMIDE [Concomitant]
     Indication: DIURETIC THERAPY
     Dosage: 20 MG, QD
  6. GLUCOTROL XL [Concomitant]
     Indication: DIABETES MELLITUS
     Dosage: 20 MG, QD
  7. LIPITOR [Concomitant]
     Dosage: 10 MG, QD
  8. TRICOR  /00499301/ [Concomitant]
     Indication: BLOOD TRIGLYCERIDES
     Dosage: 145 MG, UNK
  9. METFORMIN HYDROCHLORIDE [Concomitant]
     Indication: DIABETES MELLITUS
     Dosage: 100 MG, BID

REACTIONS (2)
  - BRONCHITIS [None]
  - HYPERTENSION [None]
